FAERS Safety Report 4491244-1 (Version None)
Quarter: 2004Q4

REPORT INFORMATION
  Report Type: 
  Country: None (occurrence: None)
  Receive Date: 20041101
  Receipt Date: 20041101
  Transmission Date: 20050328
  Serious: Yes (Hospitalization)
  Sender: FDA-Public Use
  Company Number: None

PATIENT
  Age: 83 Year
  Sex: Male
  Weight: 87.8 kg

DRUGS (8)
  1. HYDROCHLOROTHIAZIDE / LISINOPRIL  25MG/20MG [Suspect]
     Indication: HYPERTENSION
     Dosage: 1 TAB PO QD
     Route: 048
     Dates: start: 20031004
  2. HYDROCHLOROTHIAZIDE / LISINOPRIL  25MG/20MG [Suspect]
     Indication: HYPERTENSION
     Dosage: 1 TAB PO QD
     Route: 048
     Dates: start: 20040602
  3. GLYBURIDE [Concomitant]
  4. LEVOTHYROXINE SODIUM [Concomitant]
  5. RANITIDINE [Concomitant]
  6. ROSIGLITAZONE MALEATE [Concomitant]
  7. SIMVASTATIN [Concomitant]
  8. TERAZOSIN HCL [Concomitant]

REACTIONS (1)
  - HYPERKALAEMIA [None]
